FAERS Safety Report 9157062 (Version 1)
Quarter: 2013Q1

REPORT INFORMATION
  Report Type: Spontaneous
  Country: US (occurrence: None)
  Receive Date: 20130308
  Receipt Date: 20130308
  Transmission Date: 20140127
  Serious: Yes (Other)
  Sender: FDA-Public Use
  Company Number: None

PATIENT
  Sex: Female
  Weight: 136.08 kg

DRUGS (1)
  1. CHANIX [Suspect]
     Indication: TOBACCO USER
     Route: 048
     Dates: start: 201108, end: 201111

REACTIONS (4)
  - Abnormal dreams [None]
  - Hallucination [None]
  - Visual impairment [None]
  - Blindness [None]
